FAERS Safety Report 5214574-4 (Version None)
Quarter: 2006Q4

REPORT INFORMATION
  Report Type: 
  Country: None (occurrence: None)
  Receive Date: 20061108
  Receipt Date: 20060120
  Transmission Date: 20070319
  Serious: Yes (Other)
  Sender: FDA-Public Use
  Company Number: PHEH2005US09569

PATIENT
  Sex: Female

DRUGS (3)
  1. ESTRADERM [Suspect]
     Dosage: TRANSDERMAL
     Route: 062
     Dates: start: 19880101, end: 19960101
  2. PREMARIN [Suspect]
     Dates: start: 19880101, end: 19960101
  3. PROVERA [Suspect]
     Dates: start: 19880101, end: 19960101

REACTIONS (5)
  - ANXIETY [None]
  - BREAST CANCER [None]
  - INJURY [None]
  - PAIN [None]
  - PHYSICAL DISABILITY [None]
